FAERS Safety Report 10344181 (Version 3)
Quarter: 2014Q3

REPORT INFORMATION
  Report Type: Spontaneous
  Country: US (occurrence: US)
  Receive Date: 20140728
  Receipt Date: 20140916
  Transmission Date: 20150326
  Serious: Yes (Death, Hospitalization, Other)
  Sender: FDA-Public Use
  Company Number: US-AMGEN-USASP2014055303

PATIENT
  Age: 82 Year
  Sex: Female
  Weight: 63.04 kg

DRUGS (13)
  1. OMEPRAZOLE. [Concomitant]
     Active Substance: OMEPRAZOLE
     Indication: GASTROOESOPHAGEAL REFLUX DISEASE
     Dosage: 20 MG, UNK
     Route: 048
  2. ACETAMINOPHEN W/HYDROCODONE [Concomitant]
     Active Substance: ACETAMINOPHEN\HYDROCODONE
     Dosage: 5-325 MG; 1 TAB EVERY 4 HOURS UNK UNK, AS NECESSARY
     Dates: start: 20140219
  3. AMIDARONE [Concomitant]
     Active Substance: AMIODARONE
     Dosage: 200 MG, QD
     Route: 048
  4. ASPIRIN 81 [Concomitant]
     Dosage: 81 MG, QD
     Route: 048
  5. FENOFIBRATE. [Concomitant]
     Active Substance: FENOFIBRATE
     Dosage: 160 MG, UNK
  6. BACTRIM [Concomitant]
     Active Substance: SULFAMETHOXAZOLE\TRIMETHOPRIM
  7. DIAZEPAM. [Concomitant]
     Active Substance: DIAZEPAM
     Dosage: 2 MG, 1/2 (TWO TIMES DAILY)UNK
     Route: 048
  8. PROLIA [Suspect]
     Active Substance: DENOSUMAB
     Indication: OSTEOPOROSIS POSTMENOPAUSAL
     Dosage: 60 MG, Q6MO
     Route: 058
     Dates: start: 20120131
  9. LOSARTAN [Concomitant]
     Active Substance: LOSARTAN
     Indication: HYPERTENSION
     Dosage: 100 MG, QD
     Route: 048
  10. ASA [Concomitant]
     Active Substance: ASPIRIN
     Dosage: 81 MG, QD
     Route: 048
  11. FERROUS SULFATE [Concomitant]
     Active Substance: FERROUS SULFATE\FERROUS SULFATE, DRIED
     Dosage: 325 MG, QD
     Route: 048
  12. GABAPENTIN. [Concomitant]
     Active Substance: GABAPENTIN
     Dosage: 100 MG, QD
     Route: 048
  13. METOPROLOL [Concomitant]
     Active Substance: METOPROLOL
     Indication: BLOOD PRESSURE
     Dosage: 25UNK, QD
     Route: 048

REACTIONS (44)
  - Diverticulum [Unknown]
  - Burning sensation [Unknown]
  - Flatulence [Unknown]
  - Small intestinal obstruction [Unknown]
  - Abdominal pain [Unknown]
  - Pulmonary hypertension [Unknown]
  - Pleural effusion [Unknown]
  - Nausea [Unknown]
  - Myalgia [Unknown]
  - Pelvic abscess [Unknown]
  - Colonic abscess [Unknown]
  - Gastrointestinal erosion [Unknown]
  - Abdominal distension [Unknown]
  - Hyponatraemia [Unknown]
  - Asthenia [Unknown]
  - Blood calcium decreased [Unknown]
  - Sepsis [Fatal]
  - Compression fracture [Unknown]
  - Ventricular tachycardia [Unknown]
  - Neuralgia [Unknown]
  - Arteriosclerosis [Unknown]
  - Abdominal mass [Unknown]
  - Fall [Unknown]
  - Urinary retention [Unknown]
  - Back pain [Unknown]
  - Gastric polyps [Unknown]
  - Atrial flutter [Unknown]
  - Generalised oedema [Unknown]
  - Gastrointestinal sounds abnormal [Unknown]
  - Constipation [Unknown]
  - Vomiting [Unknown]
  - Renal cyst [Unknown]
  - Gait disturbance [Unknown]
  - Joint range of motion decreased [Unknown]
  - Arthralgia [Unknown]
  - Pulmonary oedema [Unknown]
  - Abdominal tenderness [Unknown]
  - Organ failure [Fatal]
  - Volvulus [Unknown]
  - Cardiac failure congestive [Unknown]
  - Intestinal haemorrhage [Unknown]
  - Paraesthesia [Unknown]
  - Anaemia macrocytic [Unknown]
  - Urinary tract infection [Unknown]

NARRATIVE: CASE EVENT DATE: 20140330
